FAERS Safety Report 8020066-X (Version None)
Quarter: 2012Q1

REPORT INFORMATION
  Report Type: 
  Country: None (occurrence: None)
  Receive Date: 20120103
  Receipt Date: 20111227
  Transmission Date: 20120608
  Serious: Yes (Other)
  Sender: FDA-Public Use
  Company Number: US-TEVA-313599USA

PATIENT
  Sex: Female

DRUGS (4)
  1. METHOTREXATE [Suspect]
     Indication: RHEUMATOID ARTHRITIS
     Dates: start: 20020101, end: 20111014
  2. ABATACEPT [Suspect]
     Route: 042
     Dates: start: 20080523, end: 20081017
  3. ABATACEPT [Suspect]
     Route: 058
     Dates: start: 20080523, end: 20081017
  4. ABATACEPT [Suspect]
     Indication: RHEUMATOID ARTHRITIS
     Route: 058
     Dates: start: 20081107, end: 20111014

REACTIONS (1)
  - BREAST CANCER IN SITU [None]
